FAERS Safety Report 6835210-7 (Version None)
Quarter: 2010Q3

REPORT INFORMATION
  Report Type: 
  Country: None (occurrence: None)
  Receive Date: 20100713
  Receipt Date: 20100702
  Transmission Date: 20110219
  Serious: Yes (Hospitalization)
  Sender: FDA-Public Use
  Company Number: US-SHIRE-SPV1-2009-02369

PATIENT

DRUGS (3)
  1. IDURSULFASE [Suspect]
     Indication: MUCOPOLYSACCHARIDOSIS II
     Dosage: 6 MG, 1X/WEEK
     Route: 041
     Dates: start: 20090909
  2. IDURSULFASE [Suspect]
     Dosage: .5 MG/KG, 1X/WEEK
     Route: 041
  3. BENADRYL [Concomitant]
     Indication: PREMEDICATION
     Dosage: 1 MG/KG, 1X/WEEK
     Route: 042
     Dates: start: 20090909

REACTIONS (2)
  - INFLUENZA [None]
  - PNEUMONIA [None]
